FAERS Safety Report 7207367-X (Version None)
Quarter: 2010Q4

REPORT INFORMATION
  Report Type: 
  Country: None (occurrence: None)
  Receive Date: 20101221
  Receipt Date: 20101210
  Transmission Date: 20110411
  Serious: Yes (Other)
  Sender: FDA-Public Use
  Company Number: US-1184441

PATIENT
  Age: 58 Year
  Sex: Male

DRUGS (2)
  1. BETAXOLOL HCL [Suspect]
     Indication: INTRAOCULAR PRESSURE INCREASED
     Dosage: 1 GT BID OU OPHTHALMIC
     Route: 047
     Dates: start: 20100701, end: 20101201
  2. LOPRESSOR [Concomitant]

REACTIONS (3)
  - HYPOAESTHESIA [None]
  - NEUROPATHY PERIPHERAL [None]
  - PARAESTHESIA [None]
